FAERS Safety Report 6398923-X (Version None)
Quarter: 2009Q4

REPORT INFORMATION
  Report Type: 
  Country: None (occurrence: None)
  Receive Date: 20091013
  Receipt Date: 20091005
  Transmission Date: 20100525
  Serious: Yes (Life-Threatening, Hospitalization)
  Sender: FDA-Public Use
  Company Number: DE-GENENTECH-291293

PATIENT
  Sex: Male
  Weight: 90 kg

DRUGS (5)
  1. BEVACIZUMAB [Suspect]
     Indication: COLORECTAL CANCER METASTATIC
     Dosage: 465 MG, Q2W
     Route: 041
     Dates: start: 20090512, end: 20090817
  2. OXALIPLATIN [Suspect]
     Indication: COLORECTAL CANCER METASTATIC
     Dosage: 170 MG, Q2W
     Route: 041
     Dates: start: 20090512, end: 20090817
  3. LEUCOVORIN CALCIUM [Suspect]
     Indication: COLORECTAL CANCER METASTATIC
     Dosage: 800 MG, Q2W
     Route: 041
     Dates: start: 20090512, end: 20090817
  4. FLUOROURACIL [Suspect]
     Indication: COLORECTAL CANCER METASTATIC
     Dosage: 800 MG, Q2W
     Route: 041
     Dates: start: 20090512, end: 20090817
  5. FLUOROURACIL [Suspect]
     Dosage: 4800 MG, Q2W
     Route: 041
     Dates: start: 20090512

REACTIONS (4)
  - INFECTION [None]
  - INTESTINAL PERFORATION [None]
  - PNEUMONIA [None]
  - SEPTIC SHOCK [None]
